FAERS Safety Report 6110832-X (Version None)
Quarter: 2009Q1

REPORT INFORMATION
  Report Type: 
  Country: None (occurrence: None)
  Receive Date: 20090311
  Receipt Date: 20090306
  Transmission Date: 20090719
  Serious: Yes (Hospitalization)
  Sender: FDA-Public Use
  Company Number: US-ELI_LILLY_AND_COMPANY-US200903001652

PATIENT
  Sex: Male

DRUGS (6)
  1. HUMATROPE [Suspect]
     Dosage: UNK, UNKNOWN
     Dates: start: 20080901
  2. KEPPRA [Concomitant]
     Dosage: UNK, UNKNOWN
  3. CORTEF [Concomitant]
     Dosage: UNK, UNKNOWN
  4. SYNTHROID [Concomitant]
     Dosage: UNK, UNKNOWN
  5. TESTIM [Concomitant]
     Dosage: UNK, UNKNOWN
  6. DESMOPRESSIN ACETATE [Concomitant]
     Dosage: UNK, UNKNOWN

REACTIONS (6)
  - ASTHENIA [None]
  - COUGH [None]
  - DEHYDRATION [None]
  - INFLUENZA [None]
  - MOBILITY DECREASED [None]
  - RHINORRHOEA [None]
